FAERS Safety Report 10213303 (Version 1)
Quarter: 2014Q2

REPORT INFORMATION
  Report Type: Spontaneous
  Country: CN (occurrence: CN)
  Receive Date: 20140603
  Receipt Date: 20140603
  Transmission Date: 20141212
  Serious: Yes (Other)
  Sender: FDA-Public Use
  Company Number: CN-ASTRAZENECA-2014SE38589

PATIENT
  Age: 21915 Day
  Sex: Male
  Weight: 70 kg

DRUGS (1)
  1. ESOMEPRAZOLE MAGNESIUM [Suspect]
     Indication: GASTRITIS
     Route: 048
     Dates: start: 20130813, end: 20130813

REACTIONS (1)
  - Anaphylactoid reaction [Recovered/Resolved]
